FAERS Safety Report 14760602 (Version 6)
Quarter: 2019Q3

REPORT INFORMATION
  Report Type: Spontaneous
  Country: US (occurrence: US)
  Receive Date: 20180414
  Receipt Date: 20190917
  Transmission Date: 20191004
  Serious: Yes (Other)
  Sender: FDA-Public Use
  Company Number: US-ASTRAZENECA-2018SE44497

PATIENT
  Age: 61 Year
  Sex: Female
  Weight: 65.8 kg

DRUGS (41)
  1. PRILOSEC [Suspect]
     Active Substance: OMEPRAZOLE MAGNESIUM
     Indication: GASTROOESOPHAGEAL REFLUX DISEASE
     Dosage: GENERIC
     Route: 065
     Dates: start: 2013, end: 2016
  2. SIMVASTATIN. [Concomitant]
     Active Substance: SIMVASTATIN
     Indication: BLOOD CHOLESTEROL INCREASED
     Dates: start: 2010
  3. ZETIA [Concomitant]
     Active Substance: EZETIMIBE
     Dates: start: 2010
  4. SYNTHROID [Concomitant]
     Active Substance: LEVOTHYROXINE SODIUM
     Indication: HYPOTHYROIDISM
     Dates: start: 2011
  5. LISINOPRIL. [Concomitant]
     Active Substance: LISINOPRIL
     Dates: start: 2012
  6. FERROUS SULFATE. [Concomitant]
     Active Substance: FERROUS SULFATE
  7. FOLIC ACID. [Concomitant]
     Active Substance: FOLIC ACID
  8. COMBIVENT [Concomitant]
     Active Substance: ALBUTEROL SULFATE\IPRATROPIUM BROMIDE
     Indication: CHRONIC OBSTRUCTIVE PULMONARY DISEASE
     Dates: start: 2011
  9. FUROSEMIDE. [Concomitant]
     Active Substance: FUROSEMIDE
     Indication: FLUID RETENTION
     Dates: start: 2010
  10. VITAMIN D [Concomitant]
     Active Substance: VITAMIN D NOS
     Indication: DEFICIENCY ANAEMIA
     Dates: start: 2016
  11. ASPIRIN. [Concomitant]
     Active Substance: ASPIRIN
     Dates: start: 2011
  12. TICAGRELOR. [Concomitant]
     Active Substance: TICAGRELOR
  13. NEXIUM [Suspect]
     Active Substance: ESOMEPRAZOLE MAGNESIUM
     Indication: GASTROOESOPHAGEAL REFLUX DISEASE
     Route: 048
     Dates: start: 2016
  14. DEXILANT [Suspect]
     Active Substance: DEXLANSOPRAZOLE
     Indication: GASTROOESOPHAGEAL REFLUX DISEASE
     Route: 065
     Dates: start: 2010, end: 2017
  15. METOPROLOL. [Concomitant]
     Active Substance: METOPROLOL
     Dates: start: 2010
  16. ZOLPIDEM [Concomitant]
     Active Substance: ZOLPIDEM TARTRATE
     Indication: SLEEP DISORDER
     Dates: start: 2011
  17. NEXIUM [Suspect]
     Active Substance: ESOMEPRAZOLE MAGNESIUM
     Indication: GASTROOESOPHAGEAL REFLUX DISEASE
     Dosage: GENERIC
     Route: 065
     Dates: start: 2001, end: 2017
  18. PROTONIX [Suspect]
     Active Substance: PANTOPRAZOLE SODIUM
     Indication: GASTROOESOPHAGEAL REFLUX DISEASE
     Route: 065
     Dates: start: 2010, end: 2017
  19. CALCIUM [Concomitant]
     Active Substance: CALCIUM
     Dates: start: 2016
  20. RANITIDINE. [Concomitant]
     Active Substance: RANITIDINE
     Dates: start: 2017
  21. AMBIEN [Concomitant]
     Active Substance: ZOLPIDEM TARTRATE
  22. PREDNISONE. [Concomitant]
     Active Substance: PREDNISONE
     Indication: INFLAMMATION
     Dates: start: 2011
  23. PLAVIX [Concomitant]
     Active Substance: CLOPIDOGREL BISULFATE
  24. DALIRESP [Concomitant]
     Active Substance: ROFLUMILAST
  25. PROTONIX [Suspect]
     Active Substance: PANTOPRAZOLE SODIUM
     Indication: GASTROOESOPHAGEAL REFLUX DISEASE
     Route: 065
     Dates: start: 2017
  26. TYLENOL [Concomitant]
     Active Substance: ACETAMINOPHEN
     Indication: ANTICOAGULANT THERAPY
     Dates: start: 2017
  27. VITAMIN B12 [Concomitant]
     Active Substance: CYANOCOBALAMIN
     Indication: GENERAL PHYSICAL HEALTH DETERIORATION
     Dates: start: 2016
  28. IRON [Concomitant]
     Active Substance: IRON
     Indication: DEFICIENCY ANAEMIA
     Dates: start: 2016
  29. ALENDRONATE [Concomitant]
     Active Substance: ALENDRONATE SODIUM
  30. IMDUR [Concomitant]
     Active Substance: ISOSORBIDE MONONITRATE
  31. NEXIUM [Suspect]
     Active Substance: ESOMEPRAZOLE MAGNESIUM
     Indication: GASTROOESOPHAGEAL REFLUX DISEASE
     Route: 048
     Dates: start: 2008, end: 2017
  32. PRILOSEC [Suspect]
     Active Substance: OMEPRAZOLE MAGNESIUM
     Indication: GASTROOESOPHAGEAL REFLUX DISEASE
     Route: 048
     Dates: start: 1990
  33. DEXILANT [Suspect]
     Active Substance: DEXLANSOPRAZOLE
     Indication: GASTROOESOPHAGEAL REFLUX DISEASE
     Route: 065
     Dates: start: 2017
  34. TOPROL XL [Concomitant]
     Active Substance: METOPROLOL SUCCINATE
  35. AMOXICILLIN. [Concomitant]
     Active Substance: AMOXICILLIN
  36. ZOLPIDEM [Concomitant]
     Active Substance: ZOLPIDEM TARTRATE
  37. PROTONIX [Suspect]
     Active Substance: PANTOPRAZOLE SODIUM
     Indication: GASTROOESOPHAGEAL REFLUX DISEASE
     Route: 065
     Dates: start: 20181002
  38. ALBUTEROL. [Concomitant]
     Active Substance: ALBUTEROL
     Indication: CHRONIC OBSTRUCTIVE PULMONARY DISEASE
     Dates: start: 2011
  39. TYLENOL [Concomitant]
     Active Substance: ACETAMINOPHEN
     Indication: PAIN
     Dates: start: 2017
  40. ZANTAC 150 (RANITIDINE HYDROCHLORIDE) [Concomitant]
     Active Substance: RANITIDINE HYDROCHLORIDE
     Dates: start: 2017
  41. NITROSTAT [Concomitant]
     Active Substance: NITROGLYCERIN

REACTIONS (4)
  - Acute kidney injury [Unknown]
  - Nephropathy [Not Recovered/Not Resolved]
  - Tubulointerstitial nephritis [Not Recovered/Not Resolved]
  - Chronic kidney disease [Not Recovered/Not Resolved]

NARRATIVE: CASE EVENT DATE: 2008
